FAERS Safety Report 25934314 (Version 4)
Quarter: 2025Q4

REPORT INFORMATION
  Report Type: Spontaneous
  Country: EU (occurrence: EU)
  Receive Date: 20251017
  Receipt Date: 20251119
  Transmission Date: 20260117
  Serious: Yes (Life-Threatening, Hospitalization, Other)
  Sender: AUROBINDO
  Company Number: CH-ROCHE-10000398872

PATIENT
  Age: 21 Year
  Sex: Female
  Weight: 55 kg

DRUGS (20)
  1. BORTEZOMIB [Suspect]
     Active Substance: BORTEZOMIB
     Indication: Plasma cell myeloma
     Dosage: UNK
     Route: 065
  2. BORTEZOMIB [Suspect]
     Active Substance: BORTEZOMIB
     Indication: Plasma cell myeloma
  3. BENDAMUSTINE [Suspect]
     Active Substance: BENDAMUSTINE
     Indication: Plasma cell myeloma
     Dosage: UNK
     Route: 065
  4. BENDAMUSTINE [Suspect]
     Active Substance: BENDAMUSTINE
     Indication: Plasma cell myeloma
  5. BENDAMUSTINE [Suspect]
     Active Substance: BENDAMUSTINE
     Indication: Plasma cell myeloma
  6. LENALIDOMIDE [Suspect]
     Active Substance: LENALIDOMIDE
     Indication: Plasma cell myeloma refractory
     Dosage: UNK
     Route: 065
  7. LENALIDOMIDE [Suspect]
     Active Substance: LENALIDOMIDE
     Indication: Plasma cell myeloma
  8. LENALIDOMIDE [Suspect]
     Active Substance: LENALIDOMIDE
     Indication: Plasma cell myeloma
  9. DEXAMETHASONE [Suspect]
     Active Substance: DEXAMETHASONE
     Indication: Plasma cell myeloma
     Dosage: UNK
     Route: 065
  10. DEXAMETHASONE [Suspect]
     Active Substance: DEXAMETHASONE
     Indication: Plasma cell myeloma
     Dosage: 40 MILLIGRAM (FOR THE FIRST 2 WEEKS)
     Route: 065
  11. DEXAMETHASONE [Suspect]
     Active Substance: DEXAMETHASONE
     Indication: Hyperviscosity syndrome
     Dosage: 20 MILLIGRAM  (1 WEEK)
     Route: 065
  12. RITUXIMAB [Suspect]
     Active Substance: RITUXIMAB
     Indication: Castleman^s disease
     Dosage: UNK
     Route: 065
  13. RITUXIMAB [Suspect]
     Active Substance: RITUXIMAB
     Indication: Plasma cell myeloma
  14. RITUXIMAB [Suspect]
     Active Substance: RITUXIMAB
     Indication: Plasma cell myeloma
  15. DARATUMUMAB [Suspect]
     Active Substance: DARATUMUMAB
     Indication: Plasma cell myeloma
     Dosage: UNK
     Route: 065
  16. DARATUMUMAB [Suspect]
     Active Substance: DARATUMUMAB
     Indication: Hyperviscosity syndrome
     Dosage: 1800 MILLIGRAM ( 1 WEEK)
  17. DARATUMUMAB [Suspect]
     Active Substance: DARATUMUMAB
     Indication: Plasma cell myeloma
  18. VENETOCLAX [Concomitant]
     Active Substance: VENETOCLAX
     Indication: Plasma cell myeloma
     Dosage: 400 MILLIGRAM (ON DAY 4-6)
  19. VENETOCLAX [Concomitant]
     Active Substance: VENETOCLAX
     Dosage: 600 MILLIGRAM
  20. VENETOCLAX [Concomitant]
     Active Substance: VENETOCLAX
     Dosage: 200 MILLIGRAM (ON DAY 1-3)

REACTIONS (7)
  - Neutropenia [Recovered/Resolved]
  - Peritonitis bacterial [Recovered/Resolved]
  - Acute kidney injury [Recovering/Resolving]
  - Ascites [Recovering/Resolving]
  - Drug ineffective [Unknown]
  - Pleural effusion [Recovered/Resolved]
  - Oedema [Recovered/Resolved]
